FAERS Safety Report 4707464-4 (Version None)
Quarter: 2005Q3

REPORT INFORMATION
  Report Type: 
  Country: None (occurrence: None)
  Receive Date: 20050706
  Receipt Date: 20050705
  Transmission Date: 20060218
  Serious: Yes (Other)
  Sender: FDA-Public Use
  Company Number: US-GLAXOSMITHKLINE-A0564944A

PATIENT
  Sex: Female

DRUGS (5)
  1. AVANDAMET [Suspect]
     Route: 048
     Dates: start: 20050101
  2. LIPITOR [Concomitant]
  3. GLUCOSAMINE CHONDROITIN [Concomitant]
  4. ASPIRIN [Concomitant]
  5. ONE A DAY WOMEN'S FORMULA [Concomitant]

REACTIONS (2)
  - HYPOGLYCAEMIA [None]
  - WEIGHT DECREASED [None]
